FAERS Safety Report 19241185 (Version 1)
Quarter: 2021Q2

REPORT INFORMATION
  Report Type: Spontaneous
  Country: US (occurrence: US)
  Receive Date: 20210511
  Receipt Date: 20210511
  Transmission Date: 20210717
  Serious: Yes (Hospitalization)
  Sender: FDA-Public Use
  Company Number: None

PATIENT
  Age: 26 Year
  Sex: Male
  Weight: 117.2 kg

DRUGS (4)
  1. CEFEPIME [Suspect]
     Active Substance: CEFEPIME HYDROCHLORIDE
     Indication: ENTEROBACTER TEST POSITIVE
     Route: 042
     Dates: start: 20210318, end: 20210410
  2. DOCUSATE [Concomitant]
     Active Substance: DOCUSATE
  3. MIRALAX [Concomitant]
     Active Substance: POLYETHYLENE GLYCOL 3350
  4. OXYCODONE?ACETAMINOPHEN [Concomitant]
     Active Substance: ACETAMINOPHEN\OXYCODONE HYDROCHLORIDE

REACTIONS (3)
  - Localised infection [None]
  - Post procedural complication [None]
  - Rash pruritic [None]

NARRATIVE: CASE EVENT DATE: 20210410
